FAERS Safety Report 10545431 (Version 1)
Quarter: 2014Q4

REPORT INFORMATION
  Report Type: Report from Study
  Country: US (occurrence: US)
  Receive Date: 20141027
  Receipt Date: 20141027
  Transmission Date: 20150529
  Serious: No
  Sender: FDA-Public Use
  Company Number: US-ABBVIE-14P-163-1198238-00

PATIENT
  Sex: Female

DRUGS (1)
  1. LUPRON DEPOT [Suspect]
     Active Substance: LEUPROLIDE ACETATE
     Indication: UTERINE LEIOMYOMA

REACTIONS (5)
  - Anaemia [Recovering/Resolving]
  - Vaginal haemorrhage [Recovering/Resolving]
  - Uterine leiomyoma [Not Recovered/Not Resolved]
  - Asthenia [Recovering/Resolving]
  - Anxiety [Recovered/Resolved]
